FAERS Safety Report 14640212 (Version 13)
Quarter: 2019Q2

REPORT INFORMATION
  Report Type: Spontaneous
  Country: DE (occurrence: DE)
  Receive Date: 20180315
  Receipt Date: 20190529
  Transmission Date: 20190711
  Serious: Yes (Hospitalization, Other)
  Sender: FDA-Public Use
  Company Number: DE-SUN PHARMACEUTICAL INDUSTRIES LTD-2018RR-166367

PATIENT
  Age: 62 Year
  Sex: Male
  Weight: 70 kg

DRUGS (18)
  1. 5-FLUOROURACIL [Suspect]
     Active Substance: FLUOROURACIL
     Dosage: 1 DOSAGE FORM, 2/WEEK, (DOSE RANGE 4344- 5792 MG)
     Route: 040
     Dates: start: 20151228, end: 20160511
  2. IRINOTECAN [Suspect]
     Active Substance: IRINOTECAN
     Indication: COLORECTAL CANCER
     Dosage: 326 MILLIGRAM, 2/WEEK, (326 MG, Q2W)
     Route: 042
     Dates: start: 20161107
  3. PEGFILGRASTIM [Concomitant]
     Active Substance: PEGFILGRASTIM
     Indication: NEUTROPENIA
     Dosage: 6 MILLIGRAM, 2/WEEK
     Route: 042
     Dates: start: 20151228
  4. DEXAMETHASON [Concomitant]
     Active Substance: DEXAMETHASONE
     Indication: NAUSEA
     Dosage: 8 MILLIGRAM, (BEFORE CHEMOTHERAPY)
     Route: 042
     Dates: start: 20151228
  5. CALCIUM FOLINAT [Suspect]
     Active Substance: LEUCOVORIN CALCIUM
     Indication: COLORECTAL CANCER
     Dosage: 1 DOSAGE FORM, 2/WEEK, 1 DF, Q2WK (362-364 MG)
     Route: 042
     Dates: start: 20151228, end: 20161107
  6. 5-FLUOROURACIL [Suspect]
     Active Substance: FLUOROURACIL
     Indication: COLORECTAL CANCER
     Dosage: 1 DOSAGE FORM, 2/WEEK, 1 DF, Q2WK (362-364 MG)
     Route: 040
     Dates: start: 20151228, end: 20161107
  7. AVASTIN [Suspect]
     Active Substance: BEVACIZUMAB
     Dosage: 350 MILLIGRAM, 2/WEEK
     Route: 042
     Dates: start: 20151228, end: 20161024
  8. BISOPROLOL [Concomitant]
     Active Substance: BISOPROLOL
     Indication: HYPERTENSION
     Dosage: 5 MG, QD
     Route: 048
  9. AVASTIN [Suspect]
     Active Substance: BEVACIZUMAB
     Dosage: 350 MILLIGRAM, 2/WEEK, (350 MG, Q2WK)
     Route: 042
     Dates: start: 20161024
  10. OXALIPLATIN. [Suspect]
     Active Substance: OXALIPLATIN
     Indication: COLORECTAL CANCER
     Dosage: 244 MILLIGRAM, 1/WEEK, (122 MG, Q2W)
     Route: 042
     Dates: start: 20160509, end: 20160815
  11. 5-FLUOROURACIL [Suspect]
     Active Substance: FLUOROURACIL
     Dosage: 724 MILLIGRAM, 2/WEEK, (724 MG, Q2WK (4344-5792 MG))
     Route: 040
     Dates: start: 20160829, end: 20161107
  12. ONDANSETRON [Concomitant]
     Active Substance: ONDANSETRON
     Indication: NAUSEA
     Dosage: 6 MG, QD, (8 MG, QD)
     Route: 042
     Dates: start: 20151228
  13. OXALIPLATIN. [Suspect]
     Active Substance: OXALIPLATIN
     Dosage: 244 MILLIGRAM, 1/WEEK, (123.76 MG, Q2W)
     Route: 042
     Dates: start: 20180815
  14. OXALIPLATIN. [Suspect]
     Active Substance: OXALIPLATIN
     Dosage: 123.76 MILLIGRAM, 2/WEEK
     Route: 042
     Dates: start: 20160509, end: 20160815
  15. IRINOTECAN [Suspect]
     Active Substance: IRINOTECAN
     Indication: OFF LABEL USE
     Dosage: 298.65 MILLIGRAM, 2/WEEK, (298.65 MG, Q2W)
     Route: 042
     Dates: start: 20151228, end: 20161107
  16. AVASTIN [Suspect]
     Active Substance: BEVACIZUMAB
     Indication: COLORECTAL CANCER METASTATIC
     Dosage: 355 MILLIGRAM, 2/WEEK, (355 MG, Q2WK)
     Route: 042
     Dates: start: 20160404, end: 20161024
  17. PANTOPRAZOL [Concomitant]
     Active Substance: PANTOPRAZOLE SODIUM
     Indication: PRODUCT USED FOR UNKNOWN INDICATION
     Dosage: 40 MILLIGRAM, QD
     Route: 048
     Dates: start: 20160619
  18. OXALIPLATIN. [Suspect]
     Active Substance: OXALIPLATIN
     Dosage: 153.85 MILLIGRAM, 2/WEEK, (123.76 OR 122 MG (1 IN 2 WK))
     Route: 042
     Dates: start: 20151228, end: 20160509

REACTIONS (3)
  - Liver abscess [Recovered/Resolved]
  - Off label use [Unknown]
  - Perihepatic abscess [Recovered/Resolved]

NARRATIVE: CASE EVENT DATE: 20160622
